FAERS Safety Report 6203055-7 (Version None)
Quarter: 2009Q2

REPORT INFORMATION
  Report Type: 
  Country: None (occurrence: None)
  Receive Date: 20090527
  Receipt Date: 20090522
  Transmission Date: 20091009
  Serious: Yes (Disabling, Other)
  Sender: FDA-Public Use
  Company Number: CA-ASTRAZENECA-2009UW11962

PATIENT
  Age: 27772 Day
  Sex: Female

DRUGS (3)
  1. CRESTOR [Suspect]
     Indication: HYPERCHOLESTEROLAEMIA
     Route: 048
     Dates: start: 20080912, end: 20080914
  2. PLENDIL [Concomitant]
     Indication: HYPERTENSION
     Route: 048
     Dates: start: 20070924
  3. FOSAMAX [Concomitant]
     Indication: OSTEOPOROSIS

REACTIONS (6)
  - BURNING SENSATION [None]
  - MUSCULAR WEAKNESS [None]
  - OEDEMA PERIPHERAL [None]
  - PAIN IN EXTREMITY [None]
  - PARAESTHESIA [None]
  - SWELLING [None]
